FAERS Safety Report 23964540 (Version 1)
Quarter: 2024Q2

REPORT INFORMATION
  Report Type: Spontaneous
  Country: US (occurrence: None)
  Receive Date: 20240611
  Receipt Date: 20240611
  Transmission Date: 20240716
  Serious: Yes (Hospitalization)
  Sender: FDA-Public Use
  Company Number: None

PATIENT
  Sex: Male

DRUGS (4)
  1. PREVYMIS [Suspect]
     Active Substance: LETERMOVIR
     Indication: Myeloproliferative neoplasm
     Dosage: 480 MG 1 TIME A DAY ORAL
     Route: 048
     Dates: start: 20240410, end: 20240607
  2. PREVYMIS [Suspect]
     Active Substance: LETERMOVIR
     Indication: Chronic disease
  3. PREVYMIS [Suspect]
     Active Substance: LETERMOVIR
     Indication: Bone marrow transplant
  4. JAKAFI [Concomitant]
     Active Substance: RUXOLITINIB

REACTIONS (2)
  - Procedural complication [None]
  - Stem cell transplant [None]
